FAERS Safety Report 25069203 (Version 3)
Quarter: 2025Q1

REPORT INFORMATION
  Report Type: Spontaneous
  Country: US (occurrence: US)
  Receive Date: 20250312
  Receipt Date: 20250331
  Transmission Date: 20250409
  Serious: Yes (Other)
  Sender: SANOFI AVENTIS
  Company Number: US-SANOFI-02439916

PATIENT
  Age: 80 Year
  Sex: Female

DRUGS (3)
  1. DUPIXENT [Suspect]
     Active Substance: DUPILUMAB
     Indication: Neurodermatitis
     Route: 065
     Dates: start: 2021
  2. XIIDRA [Suspect]
     Active Substance: LIFITEGRAST
     Route: 047
  3. EYLEA [Concomitant]
     Active Substance: AFLIBERCEPT
     Dates: start: 202410

REACTIONS (7)
  - Cataract [Not Recovered/Not Resolved]
  - Visual impairment [Unknown]
  - Neovascular age-related macular degeneration [Not Recovered/Not Resolved]
  - Condition aggravated [Unknown]
  - Vitreous floaters [Unknown]
  - Condition aggravated [Unknown]
  - Eye irritation [Unknown]

NARRATIVE: CASE EVENT DATE: 20250201
